FAERS Safety Report 6340239-1 (Version None)
Quarter: 2009Q3

REPORT INFORMATION
  Report Type: 
  Country: None (occurrence: None)
  Receive Date: 20090902
  Receipt Date: 20090820
  Transmission Date: 20100115
  Serious: Yes (Other)
  Sender: FDA-Public Use
  Company Number: JPI-P-008313

PATIENT
  Age: 52 Year
  Sex: Male
  Weight: 78.9259 kg

DRUGS (19)
  1. XYREM [Suspect]
     Indication: INSOMNIA
     Dosage: 1.5 GM (1.5 GM, 1 IN 1 D), ORAL; 3 GM (1.5 GM, 2 IN1 D), ORAL; 6 GM (3 GM, 2 IN 1 D), ORAL
     Route: 048
     Dates: start: 20090423, end: 20090428
  2. XYREM [Suspect]
     Indication: PAIN
     Dosage: 1.5 GM (1.5 GM, 1 IN 1 D), ORAL; 3 GM (1.5 GM, 2 IN1 D), ORAL; 6 GM (3 GM, 2 IN 1 D), ORAL
     Route: 048
     Dates: start: 20090423, end: 20090428
  3. XYREM [Suspect]
     Indication: INSOMNIA
     Dosage: 1.5 GM (1.5 GM, 1 IN 1 D), ORAL; 3 GM (1.5 GM, 2 IN1 D), ORAL; 6 GM (3 GM, 2 IN 1 D), ORAL
     Route: 048
     Dates: start: 20090429
  4. XYREM [Suspect]
     Indication: PAIN
     Dosage: 1.5 GM (1.5 GM, 1 IN 1 D), ORAL; 3 GM (1.5 GM, 2 IN1 D), ORAL; 6 GM (3 GM, 2 IN 1 D), ORAL
     Route: 048
     Dates: start: 20090429
  5. XYREM [Suspect]
     Indication: INSOMNIA
     Dosage: 1.5 GM (1.5 GM, 1 IN 1 D), ORAL; 3 GM (1.5 GM, 2 IN1 D), ORAL; 6 GM (3 GM, 2 IN 1 D), ORAL
     Route: 048
     Dates: start: 20090515
  6. XYREM [Suspect]
     Indication: PAIN
     Dosage: 1.5 GM (1.5 GM, 1 IN 1 D), ORAL; 3 GM (1.5 GM, 2 IN1 D), ORAL; 6 GM (3 GM, 2 IN 1 D), ORAL
     Route: 048
     Dates: start: 20090515
  7. OXYCODONE AND ACETAMINOPHEN [Concomitant]
  8. OXYCODONE [Concomitant]
  9. DIVALPROEX SODIUM [Concomitant]
  10. CLONAZEPAM [Concomitant]
  11. DOCUSATE [Concomitant]
  12. IRON [Concomitant]
  13. PROMETHAZINE [Concomitant]
  14. BACLOFEN [Concomitant]
  15. MVI (TABLETS) [Concomitant]
  16. OMEPRAZOLE [Concomitant]
  17. NICODERM (POULTICE OR PATCH) [Concomitant]
  18. MIRTAZAPINE [Concomitant]
  19. ROPINIROLE [Concomitant]

REACTIONS (11)
  - ARTHRALGIA [None]
  - BONE INFARCTION [None]
  - EXCORIATION [None]
  - FALL [None]
  - JOINT INJURY [None]
  - MUSCULOSKELETAL PAIN [None]
  - OEDEMA [None]
  - OEDEMA PERIPHERAL [None]
  - PERIPHERAL COLDNESS [None]
  - SLEEP DISORDER [None]
  - TINNITUS [None]
